FAERS Safety Report 14184664 (Version 11)
Quarter: 2019Q4

REPORT INFORMATION
  Report Type: Report from Study
  Country: KR (occurrence: KR)
  Receive Date: 20171114
  Receipt Date: 20191105
  Transmission Date: 20200122
  Serious: Yes (Life-Threatening, Hospitalization, Disabling)
  Sender: FDA-Public Use
  Company Number: KR-ROCHE-2019189

PATIENT
  Age: 50 Year
  Sex: Male
  Weight: 53.7 kg

DRUGS (31)
  1. MAGNESIUM OXIDE. [Concomitant]
     Active Substance: MAGNESIUM OXIDE
     Indication: CONSTIPATION
     Route: 065
     Dates: start: 20170724
  2. MAGNESIUM OXIDE. [Concomitant]
     Active Substance: MAGNESIUM OXIDE
     Route: 065
     Dates: start: 20170506, end: 20170512
  3. TARGIN [Concomitant]
     Active Substance: NALOXONE HYDROCHLORIDE\OXYCODONE HYDROCHLORIDE
     Route: 065
     Dates: start: 20171130
  4. TAZOPERAN [PIPERACILLIN SODIUM] [Concomitant]
     Active Substance: PIPERACILLIN SODIUM
     Route: 065
     Dates: start: 20171111
  5. TAZOPERAN [PIPERACILLIN SODIUM] [Concomitant]
     Active Substance: PIPERACILLIN SODIUM
     Route: 065
     Dates: start: 20171113, end: 20171113
  6. DENOGAN [Concomitant]
     Active Substance: PROPACETAMOL HYDROCHLORIDE
     Indication: PYREXIA
     Route: 065
     Dates: start: 20170506, end: 20170506
  7. DENOGAN [Concomitant]
     Active Substance: PROPACETAMOL HYDROCHLORIDE
     Route: 065
     Dates: start: 20171118, end: 20171120
  8. DULCOLAX (BISACODYL) [Concomitant]
     Active Substance: BISACODYL
     Indication: CONSTIPATION
     Route: 065
     Dates: start: 20171107, end: 20171107
  9. LIDOMEX [Concomitant]
     Active Substance: PREDNISOLONE VALERATE ACETATE
     Indication: DERMATITIS EXFOLIATIVE
     Route: 065
     Dates: start: 20170926
  10. CEFTRIAXONE. [Concomitant]
     Active Substance: CEFTRIAXONE
     Route: 065
     Dates: start: 20171103
  11. TETRACOSACTRIN [Concomitant]
     Route: 065
     Dates: start: 20171102
  12. VANCOMYCIN [Concomitant]
     Active Substance: VANCOMYCIN
     Route: 065
     Dates: start: 20171201, end: 20171201
  13. VANCOMYCIN [Concomitant]
     Active Substance: VANCOMYCIN
     Route: 065
     Dates: start: 20171127, end: 20171127
  14. DENOGAN [Concomitant]
     Active Substance: PROPACETAMOL HYDROCHLORIDE
     Route: 065
     Dates: start: 20171103, end: 20171105
  15. TARGIN [Concomitant]
     Active Substance: NALOXONE HYDROCHLORIDE\OXYCODONE HYDROCHLORIDE
     Route: 065
     Dates: start: 20171128, end: 20171129
  16. COSOPT [Concomitant]
     Active Substance: DORZOLAMIDE HYDROCHLORIDE\TIMOLOL MALEATE
     Indication: MACULOPATHY
     Route: 065
     Dates: start: 20170928, end: 20171010
  17. ATEZOLIZUMAB. [Suspect]
     Active Substance: ATEZOLIZUMAB
     Indication: COLORECTAL CANCER METASTATIC
     Dosage: ON 17/OCT/2017 AT 16:40, THE PATIENT RECEIVED MOST RECENT DOSE (840 MG) OF ATEZOLIZUMAB PRIOR TO THE
     Route: 042
     Dates: start: 20170914
  18. SODIUM BICARBONATE. [Concomitant]
     Active Substance: SODIUM BICARBONATE
     Indication: PROPHYLAXIS
     Route: 065
     Dates: start: 20170504
  19. TANTUM [BENZYDAMINE HYDROCHLORIDE] [Concomitant]
     Route: 065
     Dates: start: 20170724
  20. CEFTRIAXONE. [Concomitant]
     Active Substance: CEFTRIAXONE
     Indication: PYREXIA
     Route: 065
     Dates: start: 20170506, end: 20170506
  21. MONOLITUM [Concomitant]
     Active Substance: LANSOPRAZOLE
     Indication: GASTRITIS PROPHYLAXIS
     Route: 065
     Dates: start: 20171204
  22. TAZOPERAN [PIPERACILLIN SODIUM] [Concomitant]
     Active Substance: PIPERACILLIN SODIUM
     Indication: PYREXIA
     Route: 065
     Dates: start: 20171111, end: 20171111
  23. DENOGAN [Concomitant]
     Active Substance: PROPACETAMOL HYDROCHLORIDE
     Route: 065
     Dates: start: 20171122, end: 20171122
  24. CRAVIT [Concomitant]
     Active Substance: LEVOFLOXACIN
     Indication: MACULOPATHY
     Route: 065
     Dates: start: 20170928, end: 20171010
  25. DUPHALAC [Concomitant]
     Active Substance: LACTULOSE
     Route: 065
     Dates: start: 20171111, end: 20171113
  26. COBIMETINIB. [Suspect]
     Active Substance: COBIMETINIB
     Indication: COLORECTAL CANCER METASTATIC
     Dosage: ON 30/OCT/2017 AT 11:00, THE PATIENT RECEIVED MOST RECENT DOSE (40 MG, DAILY) OF COBIMETINIB PRIOR T
     Route: 048
     Dates: start: 20170914
  27. TARGIN [Concomitant]
     Active Substance: NALOXONE HYDROCHLORIDE\OXYCODONE HYDROCHLORIDE
     Indication: ABDOMINAL PAIN
     Route: 065
     Dates: start: 20170912, end: 20170915
  28. DUPHALAC [Concomitant]
     Active Substance: LACTULOSE
     Indication: CONSTIPATION
     Route: 065
     Dates: start: 20170505, end: 20170505
  29. TANTUM [BENZYDAMINE HYDROCHLORIDE] [Concomitant]
     Indication: PROPHYLAXIS
     Route: 065
     Dates: start: 20170503, end: 20170503
  30. DENOGAN [Concomitant]
     Active Substance: PROPACETAMOL HYDROCHLORIDE
     Route: 065
     Dates: start: 20171111, end: 20171111
  31. NEWHYALUNI [Concomitant]
     Indication: MACULOPATHY
     Dosage: NEWHYALUNI OPHTHALMIC SOLUTION?1 BOX
     Route: 065
     Dates: start: 20170928, end: 20171010

REACTIONS (2)
  - Hyponatraemia [Recovered/Resolved]
  - Acute kidney injury [Recovered/Resolved with Sequelae]

NARRATIVE: CASE EVENT DATE: 20171031
